FAERS Safety Report 12448776 (Version 4)
Quarter: 2018Q1

REPORT INFORMATION
  Report Type: Report from Study
  Country: JP (occurrence: JP)
  Receive Date: 20160608
  Receipt Date: 20180221
  Transmission Date: 20180508
  Serious: Yes (Other)
  Sender: FDA-Public Use
  Company Number: JP-INCYTE CORPORATION-2016IN003266

PATIENT

DRUGS (12)
  1. JAKAVI [Suspect]
     Active Substance: RUXOLITINIB
     Indication: MYELOFIBROSIS
     Dosage: 5 MG, BID
     Route: 048
     Dates: start: 20150907, end: 20151008
  2. JAKAVI [Suspect]
     Active Substance: RUXOLITINIB
     Dosage: 5 MG, QOD
     Route: 048
     Dates: start: 20170225, end: 20170528
  3. JAKAVI [Suspect]
     Active Substance: RUXOLITINIB
     Dosage: 5 MG, BID
     Route: 048
     Dates: start: 20151219, end: 20160108
  4. BAYASPIRIN [Concomitant]
     Active Substance: ASPIRIN
     Indication: MYELOFIBROSIS
     Dosage: 100 MG, QD
     Route: 048
     Dates: start: 20090225
  5. JAKAVI [Suspect]
     Active Substance: RUXOLITINIB
     Dosage: 5 MG, QD
     Route: 048
     Dates: start: 20151009, end: 20151218
  6. JAKAVI [Suspect]
     Active Substance: RUXOLITINIB
     Dosage: 5 MG BID AND 2.5 MG BID ON ALTERNATE DAY QOD
     Route: 048
     Dates: start: 20160109, end: 20160304
  7. JAKAVI [Suspect]
     Active Substance: RUXOLITINIB
     Dosage: 5 MG, QD
     Route: 048
     Dates: start: 20160305
  8. JAKAVI [Suspect]
     Active Substance: RUXOLITINIB
     Dosage: 5 MG, BID
     Route: 048
     Dates: start: 20160806, end: 20170112
  9. JAKAVI [Suspect]
     Active Substance: RUXOLITINIB
     Dosage: 5 MG, QD
     Route: 048
     Dates: start: 20170113
  10. JAKAVI [Suspect]
     Active Substance: RUXOLITINIB
     Dosage: 5 MG, QOD
     Dates: start: 20170617, end: 20171019
  11. JAKAVI [Suspect]
     Active Substance: RUXOLITINIB
     Dosage: 5 MG, QW3
     Route: 048
     Dates: start: 20171020
  12. ACICLOVIR [Concomitant]
     Active Substance: ACYCLOVIR
     Indication: OPPORTUNISTIC INFECTION PROPHYLAXIS
     Dosage: 200 MG, QD
     Route: 048
     Dates: start: 20151009

REACTIONS (6)
  - Anaemia [Recovered/Resolved]
  - Myelofibrosis [Unknown]
  - Platelet count decreased [Recovered/Resolved]
  - Haemoglobin decreased [Unknown]
  - Blood lactate dehydrogenase increased [Recovered/Resolved]
  - Chronic kidney disease [Not Recovered/Not Resolved]

NARRATIVE: CASE EVENT DATE: 20151009
